FAERS Safety Report 11066463 (Version 2)
Quarter: 2015Q2

REPORT INFORMATION
  Report Type: Spontaneous
  Country: US (occurrence: US)
  Receive Date: 20150425
  Receipt Date: 20150525
  Transmission Date: 20150821
  Serious: No
  Sender: FDA-Public Use
  Company Number: US-JNJFOC-20121010175

PATIENT
  Age: 22 Year
  Sex: Female
  Weight: 70.76 kg

DRUGS (4)
  1. CANASA SUPPOSITORIES [Concomitant]
     Route: 054
  2. REMICADE [Suspect]
     Active Substance: INFLIXIMAB
     Indication: COLITIS ULCERATIVE
     Route: 042
     Dates: start: 20121005
  3. REMICADE [Suspect]
     Active Substance: INFLIXIMAB
     Indication: COLITIS ULCERATIVE
     Route: 042
     Dates: start: 201209
  4. ASACOL HD [Concomitant]
     Active Substance: MESALAMINE
     Route: 065

REACTIONS (3)
  - Abdominal distension [Recovering/Resolving]
  - Arthralgia [Recovering/Resolving]
  - Chest pain [Recovering/Resolving]
